FAERS Safety Report 4660238-5 (Version None)
Quarter: 2005Q2

REPORT INFORMATION
  Report Type: 
  Country: None (occurrence: None)
  Receive Date: 20050427
  Receipt Date: 20050118
  Transmission Date: 20051028
  Serious: No
  Sender: FDA-Public Use
  Company Number: 211845

PATIENT
  Age: 57 Year
  Sex: Female

DRUGS (17)
  1. XOLAIR [Suspect]
     Indication: ASTHMA
     Dosage: 300 MG, Q2W, SUBCUTANEOUS
     Route: 058
     Dates: start: 20040801, end: 20041217
  2. ACCOLATE [Concomitant]
  3. TOPIMAX (TOPIRAMATE) [Concomitant]
  4. LAMICTAL [Concomitant]
  5. RISPERDAL [Concomitant]
  6. ACTIGALL [Concomitant]
  7. PRILOSEC [Concomitant]
  8. ALTACE [Concomitant]
  9. DITROPAN XL [Concomitant]
  10. ZYRTEC [Concomitant]
  11. ADVAIR (SALMETEROL XINAFOATE, FLUTICASONE PROPIONATE) [Concomitant]
  12. PREMARIN [Concomitant]
  13. PROMETRIUM [Concomitant]
  14. BUMEX [Concomitant]
  15. SEROQUEL [Concomitant]
  16. ZOCOR [Concomitant]
  17. MAXAIR [Concomitant]

REACTIONS (1)
  - VERTIGO [None]
